FAERS Safety Report 9982617 (Version 1)
Quarter: 2014Q1

REPORT INFORMATION
  Report Type: Report from Study
  Country: US (occurrence: US)
  Receive Date: 20140307
  Receipt Date: 20140307
  Transmission Date: 20141002
  Serious: No
  Sender: FDA-Public Use
  Company Number: US-ABBVIE-13P-163-1180813-00

PATIENT
  Age: 45 Year
  Sex: Female

DRUGS (11)
  1. HUMIRA [Suspect]
     Indication: RHEUMATOID ARTHRITIS
     Dates: start: 20131008
  2. NEURONTIN [Concomitant]
     Indication: PRODUCT USED FOR UNKNOWN INDICATION
     Dosage: ONE
  3. PERCOCET [Concomitant]
     Indication: PAIN
     Dosage: 10/325 MG ONE EVERY SIX HOURS
  4. PLAQUENIL [Concomitant]
     Indication: PRODUCT USED FOR UNKNOWN INDICATION
  5. BACLOFEN [Concomitant]
     Indication: PRODUCT USED FOR UNKNOWN INDICATION
     Dosage: ONCE
  6. ZANAFLEX [Concomitant]
     Indication: PRODUCT USED FOR UNKNOWN INDICATION
     Dosage: ONE TO TWO
  7. PROZAC [Concomitant]
     Indication: PRODUCT USED FOR UNKNOWN INDICATION
     Dosage: ONE
  8. KLONOPIN [Concomitant]
     Indication: PRODUCT USED FOR UNKNOWN INDICATION
     Dosage: ONE
  9. METHOTREXATE [Concomitant]
     Indication: PRODUCT USED FOR UNKNOWN INDICATION
  10. FOLIC ACID [Concomitant]
     Indication: PRODUCT USED FOR UNKNOWN INDICATION
  11. MORPHINE [Concomitant]
     Indication: SPINAL PAIN

REACTIONS (3)
  - Fatigue [Not Recovered/Not Resolved]
  - Rheumatoid arthritis [Not Recovered/Not Resolved]
  - Headache [Not Recovered/Not Resolved]
